FAERS Safety Report 12288471 (Version 3)
Quarter: 2016Q3

REPORT INFORMATION
  Report Type: Report from Study
  Country: US (occurrence: US)
  Receive Date: 20160420
  Receipt Date: 20160726
  Transmission Date: 20161109
  Serious: No
  Sender: FDA-Public Use
  Company Number: US-AMGEN-USASL2016046928

PATIENT
  Age: 68 Year
  Sex: Female

DRUGS (1)
  1. ENBREL [Suspect]
     Active Substance: ETANERCEPT
     Indication: PRODUCT USED FOR UNKNOWN INDICATION
     Dosage: UNK
     Route: 065

REACTIONS (10)
  - Pruritus [Unknown]
  - Liver disorder [Unknown]
  - Mass [Unknown]
  - Finger deformity [Unknown]
  - Pain [Unknown]
  - Adverse drug reaction [Unknown]
  - Gastrointestinal disorder [Unknown]
  - Renal disorder [Unknown]
  - Gait disturbance [Unknown]
  - Arthropathy [Not Recovered/Not Resolved]
